FAERS Safety Report 14732881 (Version 1)
Quarter: 2018Q2

REPORT INFORMATION
  Report Type: Spontaneous
  Country: US (occurrence: US)
  Receive Date: 20180409
  Receipt Date: 20180409
  Transmission Date: 20180711
  Serious: No
  Sender: FDA-Public Use
  Company Number: US-PFIZER INC-2018141481

PATIENT
  Age: 70 Year
  Sex: Male
  Weight: 81.63 kg

DRUGS (5)
  1. DOXYCYCLINE. [Concomitant]
     Active Substance: DOXYCYCLINE
     Indication: LYME DISEASE
     Dosage: 150 MG, 2X/DAY
     Route: 048
  2. BICILLIN L-A [Suspect]
     Active Substance: PENICILLIN G BENZATHINE
     Dosage: 1.2 MG, 2X/WEEK
     Dates: start: 2018
  3. BICILLIN L-A [Suspect]
     Active Substance: PENICILLIN G BENZATHINE
     Indication: LYME DISEASE
     Dosage: 1200000 IU, UNK (FOR ABOUT 2 MONTHS)
  4. 6-MP [Concomitant]
     Active Substance: MERCAPTOPURINE
     Indication: CROHN^S DISEASE
     Dosage: 50 MG, 2X/DAY
     Route: 048
  5. LEXAPRO [Concomitant]
     Active Substance: ESCITALOPRAM OXALATE
     Indication: ANXIETY
     Dosage: 15 MG, 1X/DAY
     Route: 048

REACTIONS (1)
  - Vision blurred [Not Recovered/Not Resolved]

NARRATIVE: CASE EVENT DATE: 201803
